FAERS Safety Report 5233997-0 (Version None)
Quarter: 2007Q1

REPORT INFORMATION
  Report Type: 
  Country: None (occurrence: None)
  Receive Date: 20070208
  Receipt Date: 20070202
  Transmission Date: 20070707
  Serious: Yes (Hospitalization)
  Sender: FDA-Public Use
  Company Number: FRWYE840504SEP06

PATIENT
  Age: 83 Year
  Sex: Female

DRUGS (5)
  1. EFFEXOR [Suspect]
     Dosage: UNKNOWN
     Route: 048
     Dates: start: 20060715, end: 20060803
  2. XALATAN [Suspect]
     Indication: GLAUCOMA
     Route: 057
     Dates: start: 20060201
  3. CARTEOL [Suspect]
     Indication: GLAUCOMA
     Route: 057
     Dates: start: 20060201
  4. FORTZAAR [Suspect]
     Indication: HYPERTENSION
     Route: 048
     Dates: end: 20061009
  5. CELIPROLOL HYDROCHLORIDE [Suspect]
     Indication: HYPERTENSION
     Route: 048
     Dates: end: 20061009

REACTIONS (2)
  - HAEMARTHROSIS [None]
  - IDIOPATHIC THROMBOCYTOPENIC PURPURA [None]
